FAERS Safety Report 8353345-7 (Version None)
Quarter: 2012Q2

REPORT INFORMATION
  Report Type: 
  Country: None (occurrence: None)
  Receive Date: 20120511
  Receipt Date: 20120504
  Transmission Date: 20120825
  Serious: Yes (Hospitalization)
  Sender: FDA-Public Use
  Company Number: PHEH2012US009600

PATIENT
  Sex: Female

DRUGS (5)
  1. TOBI [Suspect]
     Indication: CYSTIC FIBROSIS
     Dosage: 300 MG, BID
     Dates: start: 20111201
  2. DUONEB [Concomitant]
  3. PULMOZYME [Concomitant]
  4. ACAPELLA [Concomitant]
  5. HYPERSAL [Concomitant]

REACTIONS (4)
  - INFECTION [None]
  - HAEMOPTYSIS [None]
  - PLEURISY [None]
  - HAEMOGLOBIN DECREASED [None]
